FAERS Safety Report 10478128 (Version 2)
Quarter: 2015Q1

REPORT INFORMATION
  Report Type: Spontaneous
  Country: US (occurrence: None)
  Receive Date: 20140924
  Receipt Date: 20150102
  Transmission Date: 20150720
  Serious: Yes (Disabling, Other)
  Sender: FDA-Public Use
  Company Number: 2014-US-011806

PATIENT
  Age: 18 Year

DRUGS (3)
  1. ERWINAZE [Suspect]
     Active Substance: ASPARAGINASE ERWINIA CHRYSANTHEMI
     Indication: DRUG HYPERSENSITIVITY
     Dates: start: 20140829
  2. CLADRIBINE. [Concomitant]
     Active Substance: CLADRIBINE
  3. ERWINAZE [Suspect]
     Active Substance: ASPARAGINASE ERWINIA CHRYSANTHEMI
     Indication: LEUKAEMIA
     Dates: start: 20140829

REACTIONS (5)
  - Neutropenia [None]
  - Pyrexia [None]
  - Abdominal pain [None]
  - Back pain [None]
  - Nausea [None]

NARRATIVE: CASE EVENT DATE: 201409
